FAERS Safety Report 16421285 (Version 1)
Quarter: 2019Q3

REPORT INFORMATION
  Report Type: Spontaneous
  Country: US (occurrence: US)
  Receive Date: 20190611
  Receipt Date: 20190611
  Transmission Date: 20191004
  Serious: Yes (Disabling, Other)
  Sender: FDA-Public Use
  Company Number: None

PATIENT
  Age: 27 Year
  Sex: Female
  Weight: 87.75 kg

DRUGS (9)
  1. SALINE NASAL SPRAY [Concomitant]
     Active Substance: SODIUM CHLORIDE
  2. MUCINEX D [Concomitant]
     Active Substance: GUAIFENESIN\PSEUDOEPHEDRINE HYDROCHLORIDE
  3. COLLAGEN PEPTIDES [Concomitant]
  4. XANAX [Concomitant]
     Active Substance: ALPRAZOLAM
  5. ALBUTEROL. [Concomitant]
     Active Substance: ALBUTEROL
  6. LEVAFLOXICIN [Suspect]
     Active Substance: LEVOFLOXACIN
     Indication: SINUSITIS
     Dates: start: 20190507, end: 20190526
  7. LEVAFLOXICIN [Suspect]
     Active Substance: LEVOFLOXACIN
     Indication: STAPHYLOCOCCAL INFECTION
     Dates: start: 20190507, end: 20190526
  8. BACTRIM [Concomitant]
     Active Substance: SULFAMETHOXAZOLE\TRIMETHOPRIM
  9. NAPROXEN. [Concomitant]
     Active Substance: NAPROXEN

REACTIONS (4)
  - Tendon dislocation [None]
  - Muscle spasms [None]
  - Tendon pain [None]
  - Tendon rupture [None]

NARRATIVE: CASE EVENT DATE: 20190526
